FAERS Safety Report 20035172 (Version 2)
Quarter: 2021Q4

REPORT INFORMATION
  Report Type: Spontaneous
  Country: PL (occurrence: PL)
  Receive Date: 20211104
  Receipt Date: 20211209
  Transmission Date: 20220303
  Serious: Yes (Hospitalization, Other)
  Sender: FDA-Public Use
  Company Number: PL-AstraZeneca-2021A646860

PATIENT
  Age: 52 Year
  Sex: Male

DRUGS (1)
  1. TICAGRELOR [Suspect]
     Active Substance: TICAGRELOR
     Indication: Acute coronary syndrome
     Dosage: 90 MILLIGRAM
     Route: 048

REACTIONS (4)
  - Product administration error [Unknown]
  - Vascular stent thrombosis [Recovered/Resolved]
  - Acute myocardial infarction [Recovered/Resolved]
  - Treatment noncompliance [Unknown]
